FAERS Safety Report 4650201-2 (Version None)
Quarter: 2005Q2

REPORT INFORMATION
  Report Type: 
  Country: None (occurrence: None)
  Receive Date: 20050428
  Receipt Date: 20050412
  Transmission Date: 20051028
  Serious: Yes (Life-Threatening, Hospitalization, Disabling)
  Sender: FDA-Public Use
  Company Number: APP200500090

PATIENT
  Age: 40 Day
  Sex: Male
  Weight: 4.8 kg

DRUGS (1)
  1. AMPICILLIN [Suspect]
     Indication: SEPSIS
     Dosage: 1500 MG (375 MG), INTRAVENOUS
     Route: 042
     Dates: start: 20050127, end: 20050201

REACTIONS (3)
  - AIR EMBOLISM [None]
  - CARDIO-RESPIRATORY ARREST [None]
  - NERVOUS SYSTEM DISORDER [None]
